FAERS Safety Report 12931368 (Version 3)
Quarter: 2016Q4

REPORT INFORMATION
  Report Type: Report from Study
  Country: None (occurrence: NL)
  Receive Date: 20161110
  Receipt Date: 20161212
  Transmission Date: 20170207
  Serious: Yes (Hospitalization)
  Sender: FDA-Public Use
  Company Number: NL-ABBVIE-16P-114-1695059-00

PATIENT
  Age: 76 Year
  Sex: Male
  Weight: 72.8 kg

DRUGS (19)
  1. VINCRISTINE [Suspect]
     Active Substance: VINCRISTINE
     Indication: B-CELL LYMPHOMA
     Dosage: MOST RECENT DOSE (4 MG) ON  25 JUL 2016 AT 1555 HOURS
     Route: 042
     Dates: start: 20160725
  2. ONDANSETRON [Concomitant]
     Active Substance: ONDANSETRON
     Indication: PROPHYLAXIS
     Dates: start: 20160725
  3. RITUXIMAB [Suspect]
     Active Substance: RITUXIMAB
     Indication: B-CELL LYMPHOMA
     Dosage: LAST DOSE ADMINISTERED: 25/JUL/2016 AT 1200 HOURS
     Route: 042
     Dates: start: 20160725
  4. OXYCODON [Concomitant]
     Active Substance: OXYCODONE
     Indication: BACK PAIN
  5. PARACETAMOL [Concomitant]
     Active Substance: ACETAMINOPHEN
     Indication: BACK PAIN
  6. CLEMASTINE [Concomitant]
     Active Substance: CLEMASTINE
     Indication: PROPHYLAXIS
     Dates: start: 20160725
  7. PREGABALINE [Concomitant]
     Active Substance: PREGABALIN
     Indication: BACK PAIN
  8. NEULASTA [Concomitant]
     Active Substance: PEGFILGRASTIM
     Indication: PROPHYLAXIS
     Dates: start: 20160726, end: 20160726
  9. DOXORUBICIN [Suspect]
     Active Substance: DOXORUBICIN
     Indication: B-CELL LYMPHOMA
     Dosage: MOST RECENT DOSE (94 MG) ON 25 JUL 2016 AT 15::55 HOURS
     Route: 042
     Dates: start: 20160725
  10. PREDNISONE. [Suspect]
     Active Substance: PREDNISONE
     Indication: B-CELL LYMPHOMA
     Dosage: DATE OF MOST RECENT DOSE (100 MG) PRIOR TO EVENT ON 29 JUL 2016, DAYS 1-5
     Route: 048
     Dates: start: 20160725
  11. ESOMEPRAZOL [Concomitant]
     Active Substance: ESOMEPRAZOLE
     Indication: PROPHYLAXIS
     Dates: start: 20160708
  12. FENTANYL. [Concomitant]
     Active Substance: FENTANYL
     Indication: BACK PAIN
  13. METOCLOPRAMIDE. [Concomitant]
     Active Substance: METOCLOPRAMIDE
     Indication: PROPHYLAXIS
     Dates: start: 20160725
  14. VENETOCLAX [Suspect]
     Active Substance: VENETOCLAX
     Indication: B-CELL LYMPHOMA
     Dosage: MOST RECENT DOSE (800 MG) PRIOR TO EVENT ONSET ON 04 AUG 2016
     Route: 048
     Dates: start: 20160728
  15. ALFUZOSINE [Concomitant]
     Active Substance: ALFUZOSIN HYDROCHLORIDE
     Indication: HYPOTONIC URINARY BLADDER
  16. ALLOPURINOL. [Concomitant]
     Active Substance: ALLOPURINOL
     Indication: PROPHYLAXIS
     Dates: start: 20160725, end: 20160804
  17. FUROSEMIDE. [Concomitant]
     Active Substance: FUROSEMIDE
     Indication: HYPOTONIC URINARY BLADDER
  18. CYCLOPHOSPHAMIDE. [Suspect]
     Active Substance: CYCLOPHOSPHAMIDE
     Indication: B-CELL LYMPHOMA
     Dosage: MOST RECENT DOSE (1420 MG): 25 JUL 2016 AT 1555 HOURS
     Route: 042
     Dates: start: 20160725
  19. TEMAZEPAM. [Concomitant]
     Active Substance: TEMAZEPAM
     Indication: PRODUCT USED FOR UNKNOWN INDICATION

REACTIONS (1)
  - Acute kidney injury [Recovered/Resolved]

NARRATIVE: CASE EVENT DATE: 20160801
